FAERS Safety Report 25135775 (Version 2)
Quarter: 2025Q2

REPORT INFORMATION
  Report Type: Report from Study
  Country: CA (occurrence: CA)
  Receive Date: 20250328
  Receipt Date: 20250410
  Transmission Date: 20250716
  Serious: No
  Sender: JOHNSON AND JOHNSON
  Company Number: CA-JNJFOC-20250315026

PATIENT
  Sex: Female

DRUGS (1)
  1. GUSELKUMAB [Suspect]
     Active Substance: GUSELKUMAB
     Indication: Product used for unknown indication
     Route: 065

REACTIONS (3)
  - Product dose omission issue [Unknown]
  - Device deployment issue [Unknown]
  - Off label use [Unknown]

NARRATIVE: CASE EVENT DATE: 20250305
